FAERS Safety Report 9920281 (Version 2)
Quarter: 2014Q1

REPORT INFORMATION
  Report Type: Spontaneous
  Country: US (occurrence: US)
  Receive Date: 20140224
  Receipt Date: 20140311
  Transmission Date: 20141002
  Serious: Yes (Death, Hospitalization)
  Sender: FDA-Public Use
  Company Number: US-ACTELION-A-NJ2014-94906

PATIENT
  Age: 78 Year
  Sex: Female

DRUGS (6)
  1. OPSUMIT [Suspect]
     Indication: PULMONARY ARTERIAL HYPERTENSION
     Dosage: UNK
     Route: 048
     Dates: start: 20131128
  2. PRAVASTATIN [Concomitant]
     Dosage: 20 MG, UNK
  3. FUROSEMIDE [Concomitant]
     Dosage: 40 MG, UNK
  4. PREDNISONE [Concomitant]
     Dosage: 10 MG, UNK
  5. SOTALOL [Concomitant]
     Dosage: 80 MG, UNK
  6. VENTOLIN HFA [Concomitant]
     Dosage: 90 MCG, UNK

REACTIONS (5)
  - Pulmonary arterial hypertension [Fatal]
  - Disease progression [Fatal]
  - Pneumonia [Unknown]
  - Dyspnoea [Unknown]
  - Oedema [Fatal]
